FAERS Safety Report 12157685 (Version 2)
Quarter: 2016Q1

REPORT INFORMATION
  Report Type: Spontaneous
  Country: FR (occurrence: FR)
  Receive Date: 20160308
  Receipt Date: 20160311
  Transmission Date: 20160526
  Serious: Yes (Hospitalization)
  Sender: FDA-Public Use
  Company Number: FR-AUROBINDO-AUR-APL-2016-02372

PATIENT
  Age: 26 Year
  Sex: Male

DRUGS (2)
  1. LAMOTRIGINE. [Suspect]
     Active Substance: LAMOTRIGINE
     Indication: PRODUCT USED FOR UNKNOWN INDICATION
     Dosage: 8G(40 TABLETS OF 200 MG)
     Route: 065
  2. LACOSAMIDE [Suspect]
     Active Substance: LACOSAMIDE
     Indication: PRODUCT USED FOR UNKNOWN INDICATION
     Dosage: 6G (30 TABLETS OF 200MG)
     Route: 065

REACTIONS (9)
  - Coma [Unknown]
  - Generalised tonic-clonic seizure [Unknown]
  - Suicide attempt [Unknown]
  - Agitation [Unknown]
  - Coma scale abnormal [Unknown]
  - Blood creatine phosphokinase increased [Unknown]
  - Overdose [Unknown]
  - Status epilepticus [Unknown]
  - Self injurious behaviour [Unknown]
